FAERS Safety Report 17045145 (Version 3)
Quarter: 2019Q4

REPORT INFORMATION
  Report Type: Spontaneous
  Country: US (occurrence: US)
  Receive Date: 20191118
  Receipt Date: 20191204
  Transmission Date: 20200122
  Serious: No
  Sender: FDA-Public Use
  Company Number: US-PFIZER INC-2019489190

PATIENT
  Age: 64 Year
  Sex: Female
  Weight: 97.51 kg

DRUGS (5)
  1. MEXICAM [Concomitant]
     Dosage: UNK
     Dates: start: 201212
  2. TIKOSYN [Suspect]
     Active Substance: DOFETILIDE
     Indication: ATRIAL FIBRILLATION
     Dosage: 0.500 UG, UNK [2X]
     Dates: start: 201305
  3. SYNTHROID [Concomitant]
     Active Substance: LEVOTHYROXINE SODIUM
     Dosage: UNK
     Dates: start: 201212
  4. LOSARTAN POTASSIUM. [Concomitant]
     Active Substance: LOSARTAN POTASSIUM
     Dosage: UNK
     Dates: start: 201605
  5. TIKOSYN [Suspect]
     Active Substance: DOFETILIDE
     Dosage: 50 UG, (50 MCG 2X)
     Dates: start: 201305

REACTIONS (1)
  - Mobility decreased [Recovered/Resolved]
